FAERS Safety Report 5474860-X (Version None)
Quarter: 2007Q4

REPORT INFORMATION
  Report Type: 
  Country: None (occurrence: None)
  Receive Date: 20071002
  Receipt Date: 20070917
  Transmission Date: 20080405
  Serious: Yes (Death, Hospitalization)
  Sender: FDA-Public Use
  Company Number: NL-GENENTECH-247366

PATIENT
  Sex: Male

DRUGS (7)
  1. BEVACIZUMAB [Suspect]
     Indication: COLORECTAL CANCER
     Dosage: 560 MG, QD
     Route: 042
     Dates: start: 20061020, end: 20061110
  2. CAPECITABINE [Suspect]
     Indication: COLORECTAL CANCER
     Dosage: 4000 MG, QD
     Route: 048
     Dates: start: 20061020, end: 20061119
  3. OXALIPLATIN [Suspect]
     Indication: COLORECTAL CANCER
     Dosage: 250 MG, QD
     Route: 042
     Dates: start: 20061020, end: 20061110
  4. CETUXIMAB [Suspect]
     Indication: COLORECTAL CANCER
     Route: 042
     Dates: start: 20061020, end: 20061117
  5. ASCAL [Concomitant]
     Indication: DRUG USE FOR UNKNOWN INDICATION
  6. SELEKTINE [Concomitant]
     Indication: DRUG USE FOR UNKNOWN INDICATION
  7. FOSINOPRIL SODIUM [Concomitant]
     Indication: DRUG USE FOR UNKNOWN INDICATION

REACTIONS (3)
  - DEATH [None]
  - DIARRHOEA [None]
  - PULMONARY EMBOLISM [None]
